FAERS Safety Report 5875146-1 (Version None)
Quarter: 2008Q3

REPORT INFORMATION
  Report Type: 
  Country: None (occurrence: None)
  Receive Date: 20080909
  Receipt Date: 20080903
  Transmission Date: 20090109
  Serious: Yes (Other)
  Sender: FDA-Public Use
  Company Number: ES-BAYER-200825501GPV

PATIENT
  Age: 73 Year
  Sex: Male

DRUGS (9)
  1. ASPIRIN [Suspect]
     Indication: MYOCARDIAL ISCHAEMIA
     Route: 048
     Dates: start: 20071201
  2. ATENOLOL [Suspect]
     Indication: MYOCARDIAL ISCHAEMIA
     Route: 048
     Dates: start: 20071201
  3. PLAVIX [Suspect]
     Indication: MYOCARDIAL ISCHAEMIA
     Route: 048
     Dates: start: 20071201
  4. ATORVASTATIN [Suspect]
     Indication: CORONARY ARTERIAL STENT INSERTION
     Route: 048
     Dates: start: 20071220, end: 20080421
  5. OMEPRAZOLE [Concomitant]
     Indication: DRUG USE FOR UNKNOWN INDICATION
     Route: 048
     Dates: start: 20071201
  6. AZILECT/RASAGILIN MESILATE [Concomitant]
     Indication: PARKINSON'S DISEASE
     Route: 048
     Dates: start: 20060101
  7. COMTAN/ENTACAPON [Concomitant]
     Indication: PARKINSON'S DISEASE
     Route: 048
     Dates: start: 20030701, end: 20080523
  8. PHARKEN/PERGOLIDE MESILATE [Concomitant]
     Indication: PARKINSON'S DISEASE
     Route: 065
     Dates: start: 20040101
  9. SINEMET [Concomitant]
     Indication: PARKINSON'S DISEASE
     Route: 048
     Dates: start: 19990101

REACTIONS (1)
  - HEPATITIS [None]
